FAERS Safety Report 13565474 (Version 3)
Quarter: 2017Q3

REPORT INFORMATION
  Report Type: Report from Study
  Country: US (occurrence: US)
  Receive Date: 20170519
  Receipt Date: 20170804
  Transmission Date: 20171127
  Serious: Yes (Hospitalization)
  Sender: FDA-Public Use
  Company Number: US-BIOGEN-2017BI00403588

PATIENT
  Age: 4 Month
  Sex: Female

DRUGS (12)
  1. BACITRACIN. [Concomitant]
     Active Substance: BACITRACIN
     Indication: PRODUCT USED FOR UNKNOWN INDICATION
     Route: 061
     Dates: start: 20170428, end: 20170512
  2. SODIUM CHLORIDE 3% [Concomitant]
     Active Substance: SODIUM CHLORIDE
     Indication: INCREASED UPPER AIRWAY SECRETION
     Route: 065
  3. TYLENOL [Concomitant]
     Active Substance: ACETAMINOPHEN
     Indication: PYREXIA
     Dosage: 32 MG/ ML  (2.5 ML) EVERY 6 HOURS AS NEEDED FOR PAIN SCORE, MILD (1-3) OR FEVER FOR UP TO 5 DAYS
     Route: 048
     Dates: start: 20170428, end: 20170503
  4. GLYCERIN. [Concomitant]
     Active Substance: GLYCERIN
     Indication: CONSTIPATION
     Dosage: 0.5 AS NEEDED FOR CONSTIPATION
     Route: 054
     Dates: start: 20170308
  5. SPINRAZA [Suspect]
     Active Substance: NUSINERSEN
     Indication: SPINAL MUSCULAR ATROPHY
     Route: 037
     Dates: start: 20170314
  6. ROXICODONE [Concomitant]
     Active Substance: OXYCODONE HYDROCHLORIDE
     Indication: PAIN
     Dosage: EVERY 6 HOURS AS NEED FOR PAIN SCORE. MODERATE (4-6) FOR UP TO 3 DAYS
     Route: 048
     Dates: start: 20170428, end: 20170501
  7. CHOLECALCIFEROL [Concomitant]
     Active Substance: CHOLECALCIFEROL
     Indication: PRODUCT USED FOR UNKNOWN INDICATION
     Route: 048
  8. XOPENEX [Concomitant]
     Active Substance: LEVALBUTEROL HYDROCHLORIDE
     Indication: AIRWAY SECRETION CLEARANCE THERAPY
     Dosage: (0.63 MG TOTAL) BY INHALED (NEBULIZER ROUTE EVERY 4 HOURS AS NEEDED FOR AIRWAY CLEARANCE
     Route: 065
  9. INFANT FORMULA WITH IRON POWDER [Concomitant]
     Indication: PRODUCT USED FOR UNKNOWN INDICATION
     Route: 065
  10. TYLENOL [Concomitant]
     Active Substance: ACETAMINOPHEN
     Indication: PAIN
  11. PROVENTIL [Concomitant]
     Active Substance: ALBUTEROL
     Indication: AIRWAY SECRETION CLEARANCE THERAPY
     Dosage: 0.083% (PROVENTIL) 2.55 MG/3 ML NEBULIZER SOLUTION EVERY 4 HOURS AS NEEDED FOR COUGH
     Route: 065
  12. DUPHALAC [Concomitant]
     Active Substance: LACTULOSE
     Indication: CONSTIPATION
     Dosage: 10 GM/15 ML
     Route: 048

REACTIONS (1)
  - Hydrocephalus [Unknown]

NARRATIVE: CASE EVENT DATE: 20170425
